FAERS Safety Report 15499607 (Version 2)
Quarter: 2018Q4

REPORT INFORMATION
  Report Type: Spontaneous
  Country: DE (occurrence: DE)
  Receive Date: 20181015
  Receipt Date: 20181029
  Transmission Date: 20190205
  Serious: Yes (Hospitalization, Other)
  Sender: FDA-Public Use
  Company Number: DE-PFIZER INC-2018409615

PATIENT
  Age: 86 Year
  Sex: Male
  Weight: 65 kg

DRUGS (8)
  1. XIPAMIDE [Interacting]
     Active Substance: XIPAMIDE
     Dosage: 20 MG, DAILY
  2. NOVALGIN [METAMIZOLE SODIUM] [Concomitant]
     Dosage: 90 GTT, DAILY
  3. BISOPROLOL [Interacting]
     Active Substance: BISOPROLOL
     Dosage: UNK
  4. TAVANIC [Interacting]
     Active Substance: LEVOFLOXACIN
     Dosage: 250 MG, DAILY
  5. ASPIRIN. [Concomitant]
     Active Substance: ASPIRIN
     Dosage: 300 MG, DAILY
  6. CETIRIZINE [Concomitant]
     Active Substance: CETIRIZINE HYDROCHLORIDE
     Dosage: 10 MG, DAILY
  7. ENALAPRIL MALEATE. [Interacting]
     Active Substance: ENALAPRIL MALEATE
     Dosage: 10 MG, DAILY
  8. AMLODIPINE BESILATE [Suspect]
     Active Substance: AMLODIPINE BESYLATE
     Dosage: 5 MG, DAILY

REACTIONS (11)
  - Urinary tract infection [Recovered/Resolved]
  - Bradyarrhythmia [Recovered/Resolved]
  - Renal function test abnormal [Recovered/Resolved]
  - Disturbance in attention [Recovered/Resolved]
  - Drug interaction [Recovered/Resolved]
  - Acute kidney injury [Recovered/Resolved]
  - Altered state of consciousness [Unknown]
  - Dehydration [Recovered/Resolved]
  - Condition aggravated [Recovered/Resolved]
  - Cardiac failure [Recovered/Resolved]
  - Hypotension [Recovered/Resolved]

NARRATIVE: CASE EVENT DATE: 20080721
